FAERS Safety Report 18042023 (Version 2)
Quarter: 2022Q4

REPORT INFORMATION
  Report Type: Spontaneous
  Country: FR (occurrence: FR)
  Receive Date: 20200720
  Receipt Date: 20221217
  Transmission Date: 20230112
  Serious: Yes (Other)
  Sender: FDA-Public Use
  Company Number: FR-JNJFOC-20200711926

PATIENT
  Age: 74 Year
  Sex: Female

DRUGS (3)
  1. MELPHALAN [Suspect]
     Active Substance: MELPHALAN
     Indication: Plasma cell myeloma
     Dosage: 56 MILLIGRAM, EVERY WEEK (14 MILLIGRAM PER 0.25 WEEKS)
     Route: 065
     Dates: end: 20180212
  2. PREDNISONE [Suspect]
     Active Substance: PREDNISONE
     Indication: Plasma cell myeloma
     Dosage: 360 MILLIGRAM, EVERY WEEK (90 MILLIGRAM PER 0.25 WEEKS)
     Route: 065
     Dates: end: 20180212
  3. VELCADE [Suspect]
     Active Substance: BORTEZOMIB
     Indication: Plasma cell myeloma
     Dosage: 2 MILLIGRAM, EVERY WEEK (4 WEEKS/CYCLE)
     Route: 065
     Dates: end: 20180212

REACTIONS (3)
  - Drug ineffective [Unknown]
  - Intentional product misuse [Unknown]
  - Off label use [Unknown]

NARRATIVE: CASE EVENT DATE: 20180212
